FAERS Safety Report 10642420 (Version 1)
Quarter: 2014Q4

REPORT INFORMATION
  Report Type: Spontaneous
  Country: GB (occurrence: None)
  Receive Date: 20141208
  Receipt Date: 20141208
  Transmission Date: 20150529
  Serious: Yes (Hospitalization, Other)
  Sender: FDA-Public Use
  Company Number: ADFR-2014-02291

PATIENT
  Age: 66 Year
  Sex: Male

DRUGS (9)
  1. CO CODAMOL [Suspect]
     Active Substance: ACETAMINOPHEN\CODEINE PHOSPHATE
     Indication: ANALGESIC THERAPY
     Dosage: 2 U, 30/500; TRANSDERMAL
     Route: 062
  2. TEMAZEPAM. [Concomitant]
     Active Substance: TEMAZEPAM
  3. BACLOFEN (BACLOFEN) UNKNOWN [Suspect]
     Active Substance: BACLOFEN
     Dosage: 20 U
     Dates: start: 20121223
  4. RANITIDINE [Concomitant]
     Active Substance: RANITIDINE\RANITIDINE HYDROCHLORIDE
  5. CANDESARTAN [Suspect]
     Active Substance: CANDESARTAN
     Dates: end: 20121223
  6. CO-DANTHRAMER (DANTRON POLOXAMER) [Concomitant]
  7. AMLODIPINE [Concomitant]
     Active Substance: AMLODIPINE BESYLATE
  8. CITALOPRAM [Concomitant]
     Active Substance: CITALOPRAM HYDROBROMIDE
  9. FINASTERIDE. [Concomitant]
     Active Substance: FINASTERIDE

REACTIONS (9)
  - Malaise [None]
  - Pyrexia [None]
  - Escherichia test positive [None]
  - Blood glucose increased [None]
  - Somnolence [None]
  - Urinary tract infection [None]
  - Heart rate increased [None]
  - Sepsis [None]
  - Acute kidney injury [None]

NARRATIVE: CASE EVENT DATE: 20121223
